FAERS Safety Report 9127273 (Version 1)
Quarter: 2013Q1

REPORT INFORMATION
  Report Type: Spontaneous
  Country: US (occurrence: US)
  Receive Date: 20130125
  Receipt Date: 20130125
  Transmission Date: 20140127
  Serious: Yes (Hospitalization)
  Sender: FDA-Public Use
  Company Number: US-BAYER-2013-007335

PATIENT
  Age: 43 Year
  Sex: Female

DRUGS (18)
  1. YAZ [Suspect]
     Indication: MENOPAUSAL SYMPTOMS
  2. ZYRTEC-D [Concomitant]
  3. HYDROCHLOROTHIAZIDE [Concomitant]
     Dosage: 25 MG, DAILY
  4. CLONIDINE [Concomitant]
     Dosage: 0.1 MG, EVERY 8
  5. NERVOUS SYSTEM [Concomitant]
  6. MOTRIN [Concomitant]
     Indication: PAIN
  7. OMNICEF [Concomitant]
  8. TYLENOL [Concomitant]
  9. DILANTIN [Concomitant]
     Indication: CONVULSION
  10. DECADRON [Concomitant]
     Route: 042
  11. ATIVAN [Concomitant]
     Indication: CONVULSION
  12. ATIVAN [Concomitant]
     Indication: CONVULSION
     Dosage: 2 MG, UNK
  13. CEREBYX [Concomitant]
     Indication: CONVULSION
  14. DIAMOX [Concomitant]
     Indication: CSF VOLUME INCREASED
  15. DIAMOX [Concomitant]
     Indication: REDUCTION OF INCREASED INTRACRANIAL PRESSURE
  16. ALLEGRA [Concomitant]
  17. MULTIVITAMIN [Concomitant]
  18. PEPCID [Concomitant]

REACTIONS (1)
  - Intracranial venous sinus thrombosis [Recovering/Resolving]
